FAERS Safety Report 4703054-8 (Version None)
Quarter: 2005Q2

REPORT INFORMATION
  Report Type: 
  Country: None (occurrence: None)
  Receive Date: 20050628
  Receipt Date: 20050628
  Transmission Date: 20051028
  Serious: Yes (Hospitalization)
  Sender: FDA-Public Use
  Company Number: None

PATIENT
  Age: 47 Year
  Sex: Male
  Weight: 66 kg

DRUGS (3)
  1. ALKA SELTZER [Suspect]
     Dates: start: 20050518, end: 20050521
  2. PREVPAC [Concomitant]
  3. MULTI-VITAMIN [Concomitant]

REACTIONS (4)
  - DISEASE RECURRENCE [None]
  - HAEMATEMESIS [None]
  - HAEMORRHAGE [None]
  - MELAENA [None]
